FAERS Safety Report 14799277 (Version 2)
Quarter: 2018Q2

REPORT INFORMATION
  Report Type: Spontaneous
  Country: FR (occurrence: FR)
  Receive Date: 20180424
  Receipt Date: 20180516
  Transmission Date: 20180711
  Serious: Yes (Other)
  Sender: FDA-Public Use
  Company Number: FR-AUROBINDO-AUR-APL-2018-021842

PATIENT
  Sex: Male

DRUGS (10)
  1. PRAZEPAM [Suspect]
     Active Substance: PRAZEPAM
     Indication: MUSCLE RELAXANT THERAPY
     Dosage: IN THE MORNING, IN MIDDAY, IN THE EVENING
     Route: 065
  2. PRAZEPAM [Suspect]
     Active Substance: PRAZEPAM
     Indication: MUSCLE RELAXANT THERAPY
  3. TRAMADOL. [Suspect]
     Active Substance: TRAMADOL
     Indication: BACK PAIN
     Dosage: IN THE MORNING, IN MIDDAY, IN THE EVENING
  4. ACTISKENAN [Suspect]
     Active Substance: MORPHINE SULFATE
     Dosage: 60 MILLIGRAM ON THE DAY
  5. SKENAN [Suspect]
     Active Substance: MORPHINE SULFATE
     Indication: BACK PAIN
     Dosage: IN THE MORNING AND IN THE EVENING
     Route: 065
  6. TRAMADOL. [Suspect]
     Active Substance: TRAMADOL
     Indication: BACK PAIN
     Dosage: IN THE MORNING, IN MIDDAY, IN THE EVENING
     Route: 065
  7. ACTISKENAN [Suspect]
     Active Substance: MORPHINE SULFATE
     Indication: BACK PAIN
     Dosage: 60 MILLIGRAM, ONCE A DAY,ON THE DAY
     Route: 065
  8. SKENAN [Suspect]
     Active Substance: MORPHINE SULFATE
     Dosage: 60 MILLIGRAM, TWO TIMES A DAY,IN THE MORNING AND IN THE EVENING
     Route: 065
  9. ACTISKENAN [Suspect]
     Active Substance: MORPHINE SULFATE
     Dosage: 18 DOSAGE FORM
     Route: 065
  10. SKENAN [Suspect]
     Active Substance: MORPHINE SULFATE
     Dosage: 60 MILLIGRAM
     Route: 065

REACTIONS (6)
  - Drug diversion [Unknown]
  - Intentional product use issue [Unknown]
  - Drug abuse [Unknown]
  - Feeling abnormal [Unknown]
  - Withdrawal syndrome [Unknown]
  - Drug dependence [Unknown]
